FAERS Safety Report 18469148 (Version 2)
Quarter: 2022Q2

REPORT INFORMATION
  Report Type: Spontaneous
  Country: BR (occurrence: BR)
  Receive Date: 20201105
  Receipt Date: 20220628
  Transmission Date: 20220721
  Serious: Yes (Other)
  Sender: FDA-Public Use
  Company Number: BR-GSKCCFAMERS-CASE-00881978_AE-51441

PATIENT

DRUGS (2)
  1. VALTREX [Suspect]
     Active Substance: VALACYCLOVIR HYDROCHLORIDE
     Indication: Ophthalmic herpes zoster
     Dosage: 500 MG, BID
  2. VALTREX [Suspect]
     Active Substance: VALACYCLOVIR HYDROCHLORIDE
     Dosage: 500 MG, QD

REACTIONS (12)
  - Diabetes mellitus [Unknown]
  - Sjogren^s syndrome [Unknown]
  - Blindness [Unknown]
  - Eye disorder [Unknown]
  - Eye pain [Unknown]
  - Corneal transplant [Unknown]
  - Dysphagia [Unknown]
  - Pharyngeal contusion [Unknown]
  - Dry throat [Unknown]
  - Condition aggravated [Unknown]
  - Inappropriate schedule of product administration [Unknown]
  - Social problem [Unknown]
